FAERS Safety Report 12932229 (Version 1)
Quarter: 2016Q4

REPORT INFORMATION
  Report Type: Other
  Country: IR (occurrence: IR)
  Receive Date: 20161111
  Receipt Date: 20161111
  Transmission Date: 20170207
  Serious: Yes (Life-Threatening, Hospitalization)
  Sender: FDA-Public Use
  Company Number: IR-EMD SERONO-8119137

PATIENT
  Age: 23 Year
  Sex: Female

DRUGS (2)
  1. CHORIOGONADOTROPIN ALFA [Suspect]
     Active Substance: CHORIOGONADOTROPIN ALFA
     Indication: OVULATION INDUCTION
  2. MENOTROPIN [Suspect]
     Active Substance: MENOTROPINS
     Indication: OVULATION INDUCTION

REACTIONS (3)
  - Pancreatitis [Recovered/Resolved]
  - Ovarian hyperstimulation syndrome [Recovered/Resolved]
  - Appendicitis perforated [Recovered/Resolved]
